FAERS Safety Report 22592327 (Version 1)
Quarter: 2023Q2

REPORT INFORMATION
  Report Type: Spontaneous
  Country: AU (occurrence: AU)
  Receive Date: 20230613
  Receipt Date: 20230613
  Transmission Date: 20230722
  Serious: Yes (Other)
  Sender: FDA-Public Use
  Company Number: AU-ABBVIE-5285305

PATIENT

DRUGS (3)
  1. HUMIRA [Suspect]
     Active Substance: ADALIMUMAB
     Indication: Crohn^s disease
     Route: 058
     Dates: start: 2011, end: 2017
  2. VEDOLIZUMAB [Concomitant]
     Active Substance: VEDOLIZUMAB
     Indication: Product used for unknown indication
     Dosage: 300 MG,
     Dates: start: 202102
  3. THIOGUANINE ANHYDROUS [Concomitant]
     Active Substance: THIOGUANINE ANHYDROUS
     Indication: Product used for unknown indication
     Dates: start: 2014, end: 2017

REACTIONS (11)
  - Large intestinal stenosis [Unknown]
  - Faecal calprotectin abnormal [Unknown]
  - Colitis [Unknown]
  - Therapeutic product effect decreased [Unknown]
  - Rhinoplasty [Unknown]
  - Depression [Unknown]
  - Large intestinal ulcer [Unknown]
  - Cognitive disorder [Unknown]
  - C-reactive protein abnormal [Unknown]
  - Gastrointestinal wall thickening [Unknown]
  - Crohn^s disease [Unknown]

NARRATIVE: CASE EVENT DATE: 20160101
